FAERS Safety Report 7646113-2 (Version None)
Quarter: 2011Q3

REPORT INFORMATION
  Report Type: 
  Country: None (occurrence: None)
  Receive Date: 20110801
  Receipt Date: 20110720
  Transmission Date: 20111222
  Serious: No
  Sender: FDA-Public Use
  Company Number: US-BIOGENIDEC-2011BI003837

PATIENT
  Sex: Female

DRUGS (2)
  1. BENADRYL [Concomitant]
     Indication: PREMEDICATION
  2. TYSABRI [Suspect]
     Indication: MULTIPLE SCLEROSIS
     Route: 042
     Dates: start: 20100907

REACTIONS (11)
  - DIZZINESS [None]
  - NEUTRALISING ANTIBODIES POSITIVE [None]
  - MYALGIA [None]
  - MUSCLE SPASMS [None]
  - VOMITING [None]
  - DIPLOPIA [None]
  - RASH [None]
  - MUSCLE SPASTICITY [None]
  - ABDOMINAL PAIN UPPER [None]
  - INFUSION RELATED REACTION [None]
  - MULTIPLE SCLEROSIS [None]
